FAERS Safety Report 8476464-3 (Version None)
Quarter: 2012Q2

REPORT INFORMATION
  Report Type: 
  Country: None (occurrence: None)
  Receive Date: 20120622
  Receipt Date: 20120611
  Transmission Date: 20120825
  Serious: Yes (Other)
  Sender: FDA-Public Use
  Company Number: 2012SP033207

PATIENT
  Age: 44 Year
  Sex: Female

DRUGS (3)
  1. CHLORPROMAZINE HCL [Concomitant]
  2. WELLBUTRIN [Concomitant]
  3. SAPHRIS [Suspect]
     Indication: BIPOLAR DISORDER
     Dosage: 5 MG, QD, SL
     Route: 060
     Dates: start: 20120503, end: 20120523

REACTIONS (4)
  - INCREASED APPETITE [None]
  - PARANOIA [None]
  - RESTLESS LEGS SYNDROME [None]
  - INSOMNIA [None]
